FAERS Safety Report 7257176-0 (Version None)
Quarter: 2011Q1

REPORT INFORMATION
  Report Type: 
  Country: None (occurrence: None)
  Receive Date: 20110129
  Receipt Date: 20100720
  Transmission Date: 20110831
  Serious: No
  Sender: FDA-Public Use
  Company Number: US-ABBOTT-10P-163-0658596-00

PATIENT
  Age: 44 Year
  Sex: Female

DRUGS (2)
  1. ENDOCORT [Concomitant]
     Indication: PRODUCT USED FOR UNKNOWN INDICATION
  2. HUMIRA [Suspect]
     Indication: CROHN'S DISEASE
     Dosage: 160 MG LOADING DOSE
     Dates: start: 20100703, end: 20100703

REACTIONS (4)
  - HEADACHE [None]
  - PRODUCTIVE COUGH [None]
  - PAIN [None]
  - RESPIRATORY TRACT CONGESTION [None]
